FAERS Safety Report 17778581 (Version 1)
Quarter: 2020Q2

REPORT INFORMATION
  Report Type: Spontaneous
  Country: TR (occurrence: TR)
  Receive Date: 20200514
  Receipt Date: 20200514
  Transmission Date: 20200714
  Serious: Yes (Other)
  Sender: FDA-Public Use
  Company Number: TR-SUN PHARMACEUTICAL INDUSTRIES LTD-2020RR-247117

PATIENT
  Age: 35 Year
  Sex: Female

DRUGS (5)
  1. OLANZAPINE. [Suspect]
     Active Substance: OLANZAPINE
     Dosage: 50 MILLIGRAM, DAILY
     Route: 065
  2. CLOZAPINE. [Suspect]
     Active Substance: CLOZAPINE
     Dosage: ADDED TO THE OLANZAPINE TREATMENT AND TITRATED UP TO 50 MG/D
     Route: 065
  3. OLANZAPINE. [Suspect]
     Active Substance: OLANZAPINE
     Indication: SCHIZOPHRENIA
     Dosage: 20 MILLIGRAM, DAILY
     Route: 065
  4. CLOZAPINE. [Suspect]
     Active Substance: CLOZAPINE
     Indication: SCHIZOPHRENIA
     Dosage: WHEN THE THIRD PREGNANCY WAS CONFIRMED
     Route: 065
  5. CLOZAPINE. [Suspect]
     Active Substance: CLOZAPINE
     Dosage: GRADUALLY DECREASED AT THE THIRD TRIMESTER
     Route: 065

REACTIONS (5)
  - Maternal exposure during breast feeding [Unknown]
  - Hallucination, auditory [Recovering/Resolving]
  - Agitation [Recovering/Resolving]
  - Diabetes mellitus [Unknown]
  - Exposure during pregnancy [Unknown]
